FAERS Safety Report 14021923 (Version 1)
Quarter: 2017Q3

REPORT INFORMATION
  Report Type: Spontaneous
  Country: US (occurrence: US)
  Receive Date: 20170928
  Receipt Date: 20170928
  Transmission Date: 20171128
  Serious: Yes (Other)
  Sender: FDA-Public Use
  Company Number: US-BAYER-2017-179403

PATIENT
  Age: 67 Year
  Sex: Female
  Weight: 125 kg

DRUGS (13)
  1. BIOTIN [Concomitant]
     Active Substance: BIOTIN
     Dosage: 1000 MG, UNK
  2. CALCIUM [Concomitant]
     Active Substance: CALCIUM
  3. MIRALAX [Suspect]
     Active Substance: POLYETHYLENE GLYCOL 3350
     Dosage: 1,TEASPOON
     Route: 048
     Dates: start: 20170815, end: 20170917
  4. MAGNESIUM [Concomitant]
     Active Substance: MAGNESIUM
  5. COQ10 [Concomitant]
     Active Substance: UBIDECARENONE
     Dosage: 1 DF, QD
  6. ZINC [ZINC] [Concomitant]
  7. METOPROLOL. [Concomitant]
     Active Substance: METOPROLOL
     Dosage: 25 MG, BID
  8. DEXAMETHASONE. [Concomitant]
     Active Substance: DEXAMETHASONE
     Dosage: 5 ML, UNK
  9. CLOTRIMAZOLE. [Concomitant]
     Active Substance: CLOTRIMAZOLE
     Dosage: ONCE A DAY, QD
  10. BETAMETHASONE DIPROPIONATE. [Concomitant]
     Active Substance: BETAMETHASONE DIPROPIONATE
  11. BENEFIBER [Suspect]
     Active Substance: STARCH, WHEAT
  12. SERTRALINE HYDROCHLORIDE. [Concomitant]
     Active Substance: SERTRALINE HYDROCHLORIDE
     Dosage: UNK
  13. PANTOPRAZOLE [Concomitant]
     Active Substance: PANTOPRAZOLE
     Indication: GASTROOESOPHAGEAL REFLUX DISEASE
     Dosage: 40 MG, UNK

REACTIONS (8)
  - Abdominal pain upper [Not Recovered/Not Resolved]
  - Abdominal discomfort [Not Recovered/Not Resolved]
  - Condition aggravated [Not Recovered/Not Resolved]
  - Underdose [None]
  - Faeces hard [None]
  - Feeling abnormal [Not Recovered/Not Resolved]
  - Intestinal haemorrhage [None]
  - Abdominal pain [Recovered/Resolved]

NARRATIVE: CASE EVENT DATE: 2017
